FAERS Safety Report 19566053 (Version 2)
Quarter: 2021Q4

REPORT INFORMATION
  Report Type: Other
  Country: JP (occurrence: JP)
  Receive Date: 20210714
  Receipt Date: 20211105
  Transmission Date: 20220303
  Serious: Yes (Hospitalization, Other)
  Sender: FDA-Public Use
  Company Number: JP-CHUGAI-2021005018

PATIENT
  Age: 50 Year

DRUGS (11)
  1. ATEZOLIZUMAB [Suspect]
     Active Substance: ATEZOLIZUMAB
     Indication: Non-small cell lung cancer
     Dosage: DATE OF LAST ADMINISTRATION: 15/JUN/2021
     Route: 041
     Dates: start: 20210615
  2. BEVACIZUMAB [Suspect]
     Active Substance: BEVACIZUMAB
     Indication: Non-small cell lung cancer
     Dosage: DATE OF LAST ADMINISTRATION: 15/JUN/2021
     Route: 041
     Dates: start: 20210615
  3. CARBOPLATIN [Suspect]
     Active Substance: CARBOPLATIN
     Indication: Non-small cell lung cancer
     Dosage: DATE OF LAST ADMINISTRATION: 15/JUN/2021
     Route: 041
     Dates: start: 20210615
  4. PACLITAXEL [Suspect]
     Active Substance: PACLITAXEL
     Indication: Non-small cell lung cancer
     Dosage: DATE OF LAST ADMINISTRATION: 15/JUN/2021
     Route: 041
     Dates: start: 20210615
  5. LANSOPRAZOLE [Concomitant]
     Active Substance: LANSOPRAZOLE
     Indication: Prophylaxis
     Route: 048
  6. POLAPREZINC [Concomitant]
     Active Substance: POLAPREZINC
     Indication: Prophylaxis
     Route: 048
  7. LOXOPROFEN SODIUM [Concomitant]
     Active Substance: LOXOPROFEN SODIUM
     Indication: Pain
     Route: 048
  8. MIYA-BM [Concomitant]
     Active Substance: CLOSTRIDIUM BUTYRICUM SPORES STRAIN M-55
     Indication: Prophylaxis
     Route: 048
  9. CALONAL [Concomitant]
     Active Substance: ACETAMINOPHEN
     Indication: Pain
     Route: 048
  10. TRAMADOL HYDROCHLORIDE [Concomitant]
     Active Substance: TRAMADOL HYDROCHLORIDE
     Indication: Pain
     Route: 048
  11. LORAZEPAM [Concomitant]
     Active Substance: LORAZEPAM
     Indication: Vomiting
     Route: 048

REACTIONS (4)
  - Pyrexia [Not Recovered/Not Resolved]
  - Urinary tract infection [Unknown]
  - Toxic skin eruption [Unknown]
  - Stomatitis [Unknown]

NARRATIVE: CASE EVENT DATE: 20210624
